FAERS Safety Report 9788302 (Version 1)
Quarter: 2013Q4

REPORT INFORMATION
  Report Type: Spontaneous
  Country: US (occurrence: US)
  Receive Date: 20131230
  Receipt Date: 20131230
  Transmission Date: 20140711
  Serious: No
  Sender: FDA-Public Use
  Company Number: US-PFIZER INC-2013370921

PATIENT
  Age: 74 Year
  Sex: Male
  Weight: 73.47 kg

DRUGS (5)
  1. CELEBREX [Suspect]
     Indication: CHEST PAIN
     Dosage: 200 MG, 1X/DAY
     Route: 048
     Dates: start: 20131219, end: 20131224
  2. LIPITOR [Concomitant]
     Dosage: UNK
  3. NORTRIPTYLINE [Concomitant]
     Dosage: UNK
  4. LISINOPRIL [Concomitant]
     Indication: HYPERTENSION
     Dosage: UNK
  5. FLOMAX [Concomitant]
     Dosage: UNK

REACTIONS (2)
  - Off label use [Unknown]
  - Catheter placement [Unknown]
